FAERS Safety Report 8812500 (Version 4)
Quarter: 2014Q2

REPORT INFORMATION
  Report Type: Spontaneous
  Country: US (occurrence: US)
  Receive Date: 20120927
  Receipt Date: 20140416
  Transmission Date: 20141212
  Serious: Yes (Hospitalization, Other)
  Sender: FDA-Public Use
  Company Number: US-009507513-1209USA009466

PATIENT
  Sex: Female
  Weight: 69.39 kg

DRUGS (3)
  1. FOSAMAX [Suspect]
     Indication: OSTEOPOROSIS
     Dosage: 5 MG, UNK
     Route: 048
     Dates: start: 19980629, end: 200803
  2. FOSAMAX [Suspect]
     Dosage: 70 MG, UNK
     Route: 048
     Dates: end: 200803
  3. ALENDRONATE SODIUM [Suspect]
     Indication: OSTEOPOROSIS
     Dosage: 70 MG, UNK
     Route: 048
     Dates: start: 200804, end: 200901

REACTIONS (15)
  - Femur fracture [Unknown]
  - Intramedullary rod insertion [Unknown]
  - Visual field defect [Unknown]
  - Foot fracture [Unknown]
  - Osteopenia [Unknown]
  - Arthralgia [Unknown]
  - Vertigo positional [Unknown]
  - Road traffic accident [Unknown]
  - Memory impairment [Unknown]
  - Stress [Unknown]
  - Nervousness [Unknown]
  - Fall [Unknown]
  - Chest pain [Recovering/Resolving]
  - Musculoskeletal chest pain [Recovering/Resolving]
  - Headache [Unknown]
